FAERS Safety Report 9906131 (Version 2)
Quarter: 2015Q3

REPORT INFORMATION
  Report Type: Spontaneous
  Country: US (occurrence: US)
  Receive Date: 20140218
  Receipt Date: 20150811
  Transmission Date: 20151125
  Serious: No
  Sender: FDA-Public Use
  Company Number: US-GILEAD-2012-0051424

PATIENT
  Age: 55 Year
  Sex: Female
  Weight: 154 kg

DRUGS (4)
  1. COUMADIN [Concomitant]
     Active Substance: WARFARIN SODIUM
  2. ADCIRCA [Concomitant]
     Active Substance: TADALAFIL
  3. LETAIRIS [Suspect]
     Active Substance: AMBRISENTAN
     Indication: PRODUCT USED FOR UNKNOWN INDICATION
     Dosage: 10 MG, UNK
     Route: 048
     Dates: start: 20111101, end: 20120223
  4. TYVASO [Concomitant]
     Active Substance: TREPROSTINIL
     Indication: COR PULMONALE CHRONIC
     Dosage: UNK
     Dates: start: 20110527

REACTIONS (4)
  - Fatigue [Unknown]
  - Unevaluable event [Unknown]
  - Muscle spasms [Unknown]
  - Dyspnoea [Unknown]
